FAERS Safety Report 6669129-1 (Version None)
Quarter: 2010Q2

REPORT INFORMATION
  Report Type: 
  Country: None (occurrence: None)
  Receive Date: 20100406
  Receipt Date: 20100328
  Transmission Date: 20101027
  Serious: Yes (Hospitalization, Other)
  Sender: FDA-Public Use
  Company Number: US-SANOFI-AVENTIS-2010SA018612

PATIENT
  Age: 49 Year
  Sex: Male

DRUGS (2)
  1. LANTUS [Suspect]
     Dosage: 30-35 UNITS PER DAY
     Route: 058
  2. NOVOLOG [Suspect]
     Route: 065

REACTIONS (3)
  - BLOOD GLUCOSE INCREASED [None]
  - DIABETIC COMA [None]
  - PANCREATITIS [None]
